FAERS Safety Report 8817110 (Version 1)
Quarter: 2012Q4

REPORT INFORMATION
  Report Type: Spontaneous
  Country: GB (occurrence: None)
  Receive Date: 20121002
  Receipt Date: 20121002
  Transmission Date: 20130627
  Serious: Yes (Other)
  Sender: FDA-Public Use
  Company Number: AUR-APL-2012-04110

PATIENT
  Age: 79 Year
  Sex: Female
  Weight: 65 kg

DRUGS (4)
  1. LOSARTAN [Suspect]
     Indication: MUCOSITIS ORAL
     Route: 048
     Dates: start: 20120814
  2. LOSARTAN [Suspect]
     Indication: PROPHYLAXIS
     Route: 048
     Dates: start: 20120814
  3. BISOPROLOL (BISOPROLOL) [Concomitant]
  4. BENDROFLUMETHIAZIDE (BENDROFLUMETHIAZIDE) [Concomitant]

REACTIONS (5)
  - Muscular weakness [None]
  - Fall [None]
  - Fatigue [None]
  - Dizziness [None]
  - Depersonalisation [None]
